FAERS Safety Report 24558658 (Version 2)
Quarter: 2024Q4

REPORT INFORMATION
  Report Type: Report from Study
  Country: US (occurrence: US)
  Receive Date: 20241029
  Receipt Date: 20241030
  Transmission Date: 20250115
  Serious: Yes (Death)
  Sender: EAGLE
  Company Number: EAGL2400194

PATIENT
  Age: 34 Year
  Sex: Female

DRUGS (1)
  1. PEMFEXY [Suspect]
     Active Substance: PEMETREXED MONOHYDRATE
     Indication: Lung neoplasm malignant
     Dosage: UNK
     Route: 042

REACTIONS (1)
  - Death [Fatal]

NARRATIVE: CASE EVENT DATE: 20241009
